FAERS Safety Report 18126245 (Version 2)
Quarter: 2020Q3

REPORT INFORMATION
  Report Type: Spontaneous
  Country: DE (occurrence: DE)
  Receive Date: 20200808
  Receipt Date: 20200903
  Transmission Date: 20201103
  Serious: Yes (Other)
  Sender: FDA-Public Use
  Company Number: DE-AUROBINDO-AUR-APL-2020-038027

PATIENT
  Age: 79 Year
  Sex: Female

DRUGS (9)
  1. TORASEMID [Concomitant]
     Active Substance: TORSEMIDE
     Indication: PRODUCT USED FOR UNKNOWN INDICATION
     Dosage: 5MG/10MG
     Route: 065
     Dates: start: 2014
  2. EZETIMIBE. [Concomitant]
     Active Substance: EZETIMIBE
     Indication: PRODUCT USED FOR UNKNOWN INDICATION
     Dosage: 10 MILLIGRAM, ONCE A DAY
     Route: 065
  3. DIGIMERCK PICO [Suspect]
     Active Substance: DIGITOXIN
     Indication: ARRHYTHMIA
     Dosage: 0.05 MILLIGRAM
     Route: 065
     Dates: start: 202005
  4. DIGIMERCK PICO [Suspect]
     Active Substance: DIGITOXIN
     Dosage: 0.05 MG IN THE MORNING AND 1/2 TABLET (= 0.025 MG) IN THE EVENING
     Route: 065
     Dates: start: 20200626
  5. ELIQUIS [Concomitant]
     Active Substance: APIXABAN
     Indication: PRODUCT USED FOR UNKNOWN INDICATION
     Dosage: 5 MILLIGRAM,0.5 DAY
     Route: 065
  6. CANDECOR [Concomitant]
     Active Substance: CANDESARTAN CILEXETIL
     Indication: PRODUCT USED FOR UNKNOWN INDICATION
     Dosage: 4 MILLIGRAM, 0.5 DAY
     Route: 065
  7. DIGIMERCK PICO [Suspect]
     Active Substance: DIGITOXIN
     Dosage: 1 DOSAGE FORM, ONCE A DAY
     Route: 065
     Dates: start: 20200523
  8. BISOPROLOL FILM?COATED TABLETS [Suspect]
     Active Substance: BISOPROLOL
     Indication: PRODUCT USED FOR UNKNOWN INDICATION
     Dosage: 2.5 MILLIGRAM, 0.5 DAY
     Route: 065
     Dates: start: 20200720
  9. DIGIMERCK PICO [Suspect]
     Active Substance: DIGITOXIN
     Dosage: 3 DOSAGE FORM, 3 TIMES A DAY
     Route: 065
     Dates: start: 20200520

REACTIONS (4)
  - Arrhythmia [Unknown]
  - Drug level increased [Unknown]
  - Headache [Unknown]
  - Off label use [Unknown]

NARRATIVE: CASE EVENT DATE: 202005
